APPROVED DRUG PRODUCT: PREZISTA
Active Ingredient: DARUNAVIR
Strength: 600MG
Dosage Form/Route: TABLET;ORAL
Application: N021976 | Product #002 | TE Code: AB
Applicant: JANSSEN PRODUCTS LP
Approved: Feb 25, 2008 | RLD: Yes | RS: No | Type: RX

PATENTS:
Patent 7700645 | Expires: Dec 26, 2026
Patent 7700645*PED | Expires: Jun 26, 2027